FAERS Safety Report 6397540-5 (Version None)
Quarter: 2009Q4

REPORT INFORMATION
  Report Type: 
  Country: None (occurrence: None)
  Receive Date: 20091012
  Receipt Date: 20091005
  Transmission Date: 20100525
  Serious: No
  Sender: FDA-Public Use
  Company Number: US-B.I. PHARMACEUTICALS,INC./RIDGEFIELD-2009-BP-11616BP

PATIENT
  Age: 86 Year
  Sex: Male

DRUGS (9)
  1. FLOMAX [Suspect]
     Indication: PROSTATOMEGALY
     Dosage: 0.4 MG
     Route: 048
     Dates: start: 20080101, end: 20090701
  2. METOPROLOL [Concomitant]
     Indication: HYPERTENSION
  3. OMEPRAZOLE [Concomitant]
     Indication: GASTROOESOPHAGEAL REFLUX DISEASE
  4. ISORBIDE [Concomitant]
     Indication: HEART RATE IRREGULAR
  5. ASPIRIN [Concomitant]
     Indication: PROPHYLAXIS
  6. OXYBUTIN [Concomitant]
     Indication: BLADDER DISORDER
  7. DIGOXIN [Concomitant]
     Indication: HEART RATE IRREGULAR
  8. FUROSEMIDE [Concomitant]
     Indication: CARDIAC FAILURE CONGESTIVE
  9. COUMADIN [Concomitant]
     Indication: HEART RATE IRREGULAR

REACTIONS (1)
  - SEMEN VOLUME DECREASED [None]
